FAERS Safety Report 6764878-9 (Version None)
Quarter: 2010Q2

REPORT INFORMATION
  Report Type: 
  Country: None (occurrence: None)
  Receive Date: 20100610
  Receipt Date: 20100607
  Transmission Date: 20101027
  Serious: Yes (Hospitalization)
  Sender: FDA-Public Use
  Company Number: AT-ELI_LILLY_AND_COMPANY-AT201005000899

PATIENT
  Age: 67 Year
  Sex: Female
  Weight: 101 kg

DRUGS (10)
  1. ALIMTA [Suspect]
     Indication: URETHRAL CANCER
     Dosage: 1000 MG, UNKNOWN
     Route: 065
     Dates: start: 20100326, end: 20100425
  2. ALIMTA [Suspect]
     Dosage: UNK, UNK
     Dates: start: 20100101, end: 20100101
  3. FOLIC ACID [Concomitant]
  4. VITAMIN B-12 [Concomitant]
  5. DEXAMETHASONE [Concomitant]
  6. EZETIMIBE/SIMVASTATIN [Concomitant]
     Indication: HYPERCHOLESTEROLAEMIA
  7. PANTOLOC                           /01263201/ [Concomitant]
     Indication: GASTRITIS
     Dosage: 40 MG, UNK
  8. TRAMAL                                  /GFR/ [Concomitant]
     Indication: ARTHRITIS
     Dosage: 100 MG, 2/D
  9. FOLSAN [Concomitant]
     Dates: start: 20100326
  10. ERYCYTOL [Concomitant]
     Dosage: UNK, 1 VIAL EVERY 9 WEEKS

REACTIONS (5)
  - C-REACTIVE PROTEIN INCREASED [None]
  - ERYSIPELAS [None]
  - OFF LABEL USE [None]
  - PAIN IN EXTREMITY [None]
  - RASH [None]
